FAERS Safety Report 12175048 (Version 2)
Quarter: 2016Q2

REPORT INFORMATION
  Report Type: Spontaneous
  Country: FR (occurrence: FR)
  Receive Date: 20160314
  Receipt Date: 20160419
  Transmission Date: 20160815
  Serious: Yes (Other)
  Sender: FDA-Public Use
  Company Number: FR-PFIZER INC-2016134717

PATIENT
  Age: 69 Year
  Sex: Male

DRUGS (14)
  1. TAREG [Concomitant]
     Active Substance: VALSARTAN
     Dosage: 1 DF OF 160, DAILY
  2. VITAMINE B1 [Concomitant]
     Dosage: 3 DF, DAILY
  3. DAFALGAN [Concomitant]
     Active Substance: ACETAMINOPHEN
     Dosage: 1 DF OF 1 G, 3X/DAY
  4. LANTUS SOLOSTAR [Concomitant]
     Active Substance: INSULIN GLARGINE
  5. LYRICA [Suspect]
     Active Substance: PREGABALIN
     Indication: PAIN IN EXTREMITY
  6. KARDEGIC [Concomitant]
     Active Substance: ASPIRIN LYSINE
     Dosage: 1 DF OF 75, DAILY
  7. LASILIX [Concomitant]
     Active Substance: FUROSEMIDE
     Dosage: 1 DF OF 20, DAILY
  8. BEFIZAL [Concomitant]
     Active Substance: BEZAFIBRATE
     Dosage: 1 DF OF 400, DAILY
  9. VITAMIN B6 [Concomitant]
     Active Substance: PYRIDOXINE HYDROCHLORIDE
     Dosage: 3 DF, DAILY
  10. LYRICA [Suspect]
     Active Substance: PREGABALIN
     Indication: MUSCULOSKELETAL PAIN
  11. DIAMICRON [Concomitant]
     Active Substance: GLICLAZIDE
     Dosage: 2 DF OF 80, DAILY
  12. ZOLPIDEM [Concomitant]
     Active Substance: ZOLPIDEM\ZOLPIDEM TARTRATE
  13. LYRICA [Suspect]
     Active Substance: PREGABALIN
     Indication: PARAESTHESIA
     Dosage: 25 MG, 2X/DAY MORNING AND EVENING
     Dates: start: 20160119
  14. ADENURIC [Concomitant]
     Active Substance: FEBUXOSTAT
     Dosage: 1 DF OF 80, DAILY

REACTIONS (17)
  - Activities of daily living impaired [Unknown]
  - Neutrophil count increased [Unknown]
  - C-reactive protein increased [Unknown]
  - Pain in extremity [Unknown]
  - Pelvic pain [Unknown]
  - Insomnia [Unknown]
  - Polyarthritis [Unknown]
  - Arthralgia [Unknown]
  - Speech disorder [Unknown]
  - Back pain [Unknown]
  - Musculoskeletal disorder [Unknown]
  - Musculoskeletal pain [Unknown]
  - Feeling drunk [Unknown]
  - Pain [Unknown]
  - White blood cell count increased [Unknown]
  - Dysstasia [Unknown]
  - Condition aggravated [Unknown]

NARRATIVE: CASE EVENT DATE: 20160309
